FAERS Safety Report 4436896-7 (Version None)
Quarter: 2004Q3

REPORT INFORMATION
  Report Type: 
  Country: None (occurrence: None)
  Receive Date: 20040726
  Receipt Date: 20040322
  Transmission Date: 20050211
  Serious: No
  Sender: FDA-Public Use
  Company Number: USA040362731

PATIENT
  Age: 74 Year
  Sex: Female

DRUGS (2)
  1. FORTEO [Suspect]
     Indication: OSTEOPOROSIS
     Dates: start: 20040101
  2. CALCIUM CARBONATE [Concomitant]

REACTIONS (7)
  - COUGH [None]
  - DEAFNESS UNILATERAL [None]
  - EAR INFECTION [None]
  - PRODUCTIVE COUGH [None]
  - PULMONARY CONGESTION [None]
  - PYREXIA [None]
  - RESPIRATORY TRACT INFECTION [None]
